FAERS Safety Report 10666530 (Version 2)
Quarter: 2016Q2

REPORT INFORMATION
  Report Type: Spontaneous
  Country: US (occurrence: US)
  Receive Date: 20141221
  Receipt Date: 20160526
  Transmission Date: 20160815
  Serious: Yes (Hospitalization, Other)
  Sender: FDA-Public Use
  Company Number: US-GLAXOSMITHKLINE-US2014GSK038955

PATIENT
  Sex: Male

DRUGS (15)
  1. DILTIAZEM [Concomitant]
     Active Substance: DILTIAZEM
  2. BENADRYL [Concomitant]
     Active Substance: DIPHENHYDRAMINE HYDROCHLORIDE
  3. PREDNISONE. [Concomitant]
     Active Substance: PREDNISONE
  4. XTANDI [Concomitant]
     Active Substance: ENZALUTAMIDE
  5. NEXIUM [Concomitant]
     Active Substance: ESOMEPRAZOLE MAGNESIUM
  6. ZOCOR [Concomitant]
     Active Substance: SIMVASTATIN
  7. VITAMIN E [Concomitant]
     Active Substance: .ALPHA.-TOCOPHEROL
  8. ADVAIR DISKUS [Suspect]
     Active Substance: FLUTICASONE PROPIONATE\SALMETEROL XINAFOATE
     Dosage: 100/50 UG, 1 PUFF(S), BID
     Route: 055
  9. ADVAIR DISKUS [Suspect]
     Active Substance: FLUTICASONE PROPIONATE\SALMETEROL XINAFOATE
     Dosage: 250/50 UG, 1 PUFF(S), BID
     Route: 055
  10. DIOVAN [Concomitant]
     Active Substance: VALSARTAN
  11. ADVAIR DISKUS [Suspect]
     Active Substance: FLUTICASONE PROPIONATE\SALMETEROL XINAFOATE
     Indication: PRODUCT USED FOR UNKNOWN INDICATION
     Dosage: 1 PUFF(S), BID
     Route: 055
     Dates: start: 2004
  12. ZOFRAN [Concomitant]
     Active Substance: ONDANSETRON HYDROCHLORIDE
  13. ASPIRIN. [Concomitant]
     Active Substance: ASPIRIN
  14. TRAMADOL. [Concomitant]
     Active Substance: TRAMADOL
  15. CALCIUM [Concomitant]
     Active Substance: CALCIUM

REACTIONS (5)
  - Bone pain [Not Recovered/Not Resolved]
  - Prostate cancer metastatic [Unknown]
  - Metastases to bladder [Unknown]
  - Prostatectomy [Recovered/Resolved]
  - Metastases to bone [Not Recovered/Not Resolved]
